FAERS Safety Report 9329546 (Version 1)
Quarter: 2013Q2

REPORT INFORMATION
  Report Type: Spontaneous
  Country: US (occurrence: US)
  Receive Date: 20130604
  Receipt Date: 20130604
  Transmission Date: 20140414
  Serious: Yes (Hospitalization)
  Sender: FDA-Public Use
  Company Number: US-PURDUE-USA-2013-0102889

PATIENT
  Age: 50 Year
  Sex: Female
  Weight: 81.18 kg

DRUGS (3)
  1. OXYCONTIN (NDA 22-272) [Suspect]
     Indication: PAIN
  2. LYRICA [Interacting]
     Indication: NERVE INJURY
     Dosage: UNK
  3. LYRICA [Interacting]
     Indication: FIBROMYALGIA

REACTIONS (9)
  - Staphylococcal infection [Unknown]
  - Drug interaction [Unknown]
  - Diarrhoea [Unknown]
  - Vomiting [Unknown]
  - Somnolence [Unknown]
  - Weight decreased [Unknown]
  - Hypertension [Unknown]
  - Chills [Unknown]
  - Dizziness [Unknown]
